FAERS Safety Report 7559395-2 (Version None)
Quarter: 2011Q2

REPORT INFORMATION
  Report Type: 
  Country: None (occurrence: None)
  Receive Date: 20110617
  Receipt Date: 20110617
  Transmission Date: 20111010
  Serious: Yes (Hospitalization)
  Sender: FDA-Public Use
  Company Number: None

PATIENT
  Age: 71 Year
  Sex: Male
  Weight: 109 kg

DRUGS (1)
  1. ENOXAPARIN [Suspect]
     Indication: ATRIAL FIBRILLATION
     Dosage: 110 MG BID SQ
     Route: 058
     Dates: start: 20100614, end: 20100622

REACTIONS (4)
  - GASTRIC HAEMORRHAGE [None]
  - ANAEMIA [None]
  - HAEMATOCHEZIA [None]
  - DRUG ADMINISTRATION ERROR [None]
